FAERS Safety Report 15807518 (Version 2)
Quarter: 2019Q1

REPORT INFORMATION
  Report Type: Spontaneous
  Country: CH (occurrence: CH)
  Receive Date: 20190110
  Receipt Date: 20190125
  Transmission Date: 20190417
  Serious: Yes (Hospitalization, Other)
  Sender: FDA-Public Use
  Company Number: CH-MYLANLABS-2019M1001931

PATIENT

DRUGS (7)
  1. PANTOZOL [Concomitant]
     Active Substance: PANTOPRAZOLE SODIUM
     Indication: GASTROINTESTINAL INFLAMMATION
     Dosage: 40 MILLIGRAM, QD
     Route: 048
  2. ISOPTIN [Suspect]
     Active Substance: VERAPAMIL HYDROCHLORIDE
     Indication: HYPERTROPHIC CARDIOMYOPATHY
     Dosage: 120 MILLIGRAM, BID
     Route: 048
     Dates: start: 20180726
  3. ACIDUM FOLICUM STREULI [Concomitant]
     Active Substance: FOLIC ACID
     Indication: ANAEMIA
     Dosage: 5 MILLIGRAM, QD
     Route: 048
  4. FERRO SANOL [Interacting]
     Active Substance: FERROUS GLYCINE SULFATE
     Indication: ANAEMIA
     Dosage: 100 MILLIGRAM, BID
     Route: 048
     Dates: end: 20181214
  5. ZOLPIDEM MEPHA [Concomitant]
     Active Substance: ZOLPIDEM TARTRATE
     Dosage: 5 MILLIGRAM, QD
     Route: 048
  6. XARELTO [Interacting]
     Active Substance: RIVAROXABAN
     Indication: ATRIAL FIBRILLATION
     Dosage: 20 MILLIGRAM, QD
     Route: 048
     Dates: start: 20181107, end: 20181214
  7. TIROSINT [Concomitant]
     Active Substance: LEVOTHYROXINE SODIUM
     Indication: HYPOTHYROIDISM
     Dosage: 100 MICROGRAM, QD
     Route: 048

REACTIONS (4)
  - Drug interaction [Recovered/Resolved]
  - Gastrointestinal haemorrhage [Unknown]
  - Lower gastrointestinal haemorrhage [Recovered/Resolved]
  - Wrong strength [Recovered/Resolved]

NARRATIVE: CASE EVENT DATE: 20181107
